FAERS Safety Report 18510653 (Version 1)
Quarter: 2020Q4

REPORT INFORMATION
  Report Type: Report from Study
  Country: CR (occurrence: CR)
  Receive Date: 20201117
  Receipt Date: 20201117
  Transmission Date: 20210114
  Serious: Yes (Other)
  Sender: FDA-Public Use
  Company Number: NVSC2020CR303050

PATIENT
  Age: 63 Year
  Sex: Male

DRUGS (2)
  1. EXFORGE [Suspect]
     Active Substance: AMLODIPINE BESYLATE\VALSARTAN
     Indication: BLOOD PRESSURE INCREASED
     Dosage: (10/320 MG)
     Route: 065
     Dates: end: 201908
  2. EXFORGE [Suspect]
     Active Substance: AMLODIPINE BESYLATE\VALSARTAN
     Dosage: (5/160 MG)
     Route: 065
     Dates: start: 201909

REACTIONS (2)
  - Cardiovascular disorder [Unknown]
  - Speech disorder [Unknown]
